FAERS Safety Report 16243119 (Version 2)
Quarter: 2019Q2

REPORT INFORMATION
  Report Type: Spontaneous
  Country: ES (occurrence: ES)
  Receive Date: 20190426
  Receipt Date: 20190502
  Transmission Date: 20190711
  Serious: Yes (Disabling)
  Sender: FDA-Public Use
  Company Number: ES-EMD SERONO-E2B_90067719

PATIENT
  Sex: Male
  Weight: 3.24 kg

DRUGS (2)
  1. TOCOPHEROL [Suspect]
     Active Substance: TOCOPHEROL
     Indication: MULTIPLE SCLEROSIS
     Route: 064
  2. REBIF [Suspect]
     Active Substance: INTERFERON BETA-1A
     Indication: MULTIPLE SCLEROSIS
     Route: 064

REACTIONS (1)
  - Cleft lip [Unknown]

NARRATIVE: CASE EVENT DATE: 2018
